FAERS Safety Report 23517457 (Version 1)
Quarter: 2024Q1

REPORT INFORMATION
  Report Type: 
  Country: None (occurrence: None)
  Receive Date: 20240213
  Receipt Date: 20240213
  Transmission Date: 20240410
  Serious: No
  Sender: FDA-Public Use
  Company Number: CN-ROCHE-3502074

PATIENT
  Weight: 52 kg

DRUGS (7)
  1. RITUXIMAB [Suspect]
     Active Substance: RITUXIMAB
     Dosage: DOSE LAST STUDY DRUG ADMIN PRIOR AE AND SAE 577.5 MG?START DATE OF MOST RECENT DOSE OF STUDY DRUG PR
  2. POLATUZUMAB VEDOTIN [Suspect]
     Active Substance: POLATUZUMAB VEDOTIN
     Dosage: DOSE LAST STUDY DRUG ADMIN PRIOR AE AND SAE 93.6 MG?START DATE OF MOST RECENT DOSE OF STUDY DRUG PRI
  3. DOXORUBICIN [Suspect]
     Active Substance: DOXORUBICIN
     Dosage: DOSE LAST STUDY DRUG ADMIN PRIOR AE AND SAE 77 MG?START DATE OF MOST RECENT DOSE OF STUDY DRUG PRIOR
  4. CYCLOPHOSPHAMIDE [Suspect]
     Active Substance: CYCLOPHOSPHAMIDE
     Dosage: DOSE LAST STUDY DRUG ADMIN PRIOR AE 1155 MG?START DATE OF MOST RECENT DOSE OF STUDY DRUG PRIOR TO AE
  5. PREDNISOLONE [Suspect]
     Active Substance: PREDNISOLONE
     Dosage: DOSE LAST STUDY DRUG ADMIN PRIOR AE AND SAE 100 MG?START DATE OF MOST RECENT DOSE OF STUDY DRUG PRIO
  6. CEFTAZIDIME [Concomitant]
     Active Substance: CEFTAZIDIME
     Dates: start: 20240131
  7. AGKISTRODON VIPER HEMAGGLUTINASE [Concomitant]
     Dates: start: 20240131

REACTIONS (2)
  - Myelosuppression [None]
  - Pneumonia [None]

NARRATIVE: CASE EVENT DATE: 20240128
